FAERS Safety Report 20324949 (Version 1)
Quarter: 2022Q1

REPORT INFORMATION
  Report Type: Spontaneous
  Country: CN (occurrence: CN)
  Receive Date: 20220111
  Receipt Date: 20220111
  Transmission Date: 20220423
  Serious: Yes (Other)
  Sender: FDA-Public Use
  Company Number: CN-BAXTER-2022BAX000579

PATIENT
  Age: 65 Year
  Sex: Female
  Weight: 65 kg

DRUGS (4)
  1. CYCLOPHOSPHAMIDE [Suspect]
     Active Substance: CYCLOPHOSPHAMIDE
     Indication: Breast cancer female
     Dosage: 0.9% NS 50ML + CYCLOPHOSPHAMIDE 0.9G
     Route: 041
     Dates: start: 20211216, end: 20211216
  2. SODIUM CHLORIDE [Suspect]
     Active Substance: SODIUM CHLORIDE
     Indication: Medication dilution
     Dosage: 0.9% NS 50ML + CYCLOPHOSPHAMIDE 0.9G
     Route: 041
     Dates: start: 20211216, end: 20211216
  3. SODIUM CHLORIDE [Suspect]
     Active Substance: SODIUM CHLORIDE
     Dosage: DOCETAXEL 110 MG + 0.9% SODIUM CHLORIDE 250ML
     Route: 041
     Dates: start: 20211216, end: 20211216
  4. DOCETAXEL [Suspect]
     Active Substance: DOCETAXEL
     Indication: Breast cancer female
     Dosage: DOCETAXEL 110 MG + 0.9% SODIUM CHLORIDE 250ML
     Route: 041
     Dates: start: 20211216, end: 20211216

REACTIONS (1)
  - Myelosuppression [Recovered/Resolved]

NARRATIVE: CASE EVENT DATE: 20211221
